FAERS Safety Report 22390906 (Version 1)
Quarter: 2023Q2

REPORT INFORMATION
  Report Type: Spontaneous
  Country: FR (occurrence: FR)
  Receive Date: 20230601
  Receipt Date: 20230601
  Transmission Date: 20230722
  Serious: Yes (Hospitalization, Other)
  Sender: FDA-Public Use
  Company Number: None

PATIENT
  Age: 58 Year
  Sex: Female

DRUGS (11)
  1. HYDROXYUREA [Suspect]
     Active Substance: HYDROXYUREA
     Indication: Polycythaemia vera
     Dosage: 1 CAPSULE IN THE MORNING
     Route: 048
     Dates: start: 202107
  2. IRBESARTAN [Suspect]
     Active Substance: IRBESARTAN
     Dosage: 1 IN THE MORNING ?DAILY DOSE: 1 DOSAGE FORM
  3. CLOPIDOGREL [Suspect]
     Active Substance: CLOPIDOGREL BISULFATE
     Dosage: 1 IN THE EVENING ?DAILY DOSE: 1 DOSAGE FORM
  4. ATORVASTATIN [Suspect]
     Active Substance: ATORVASTATIN
     Dosage: 1 IN THE EVENING ?DAILY DOSE: 1 DOSAGE FORM
  5. PANTOPRAZOLE [Suspect]
     Active Substance: PANTOPRAZOLE
     Dosage: 1 IN THE EVENING ?DAILY DOSE: 1 DOSAGE FORM
  6. SOLIFENACIN SUCCINATE [Suspect]
     Active Substance: SOLIFENACIN SUCCINATE
     Dosage: 1 IN THE MORNING?DAILY DOSE: 1 DOSAGE FORM
  7. AMITRIPTYLINE [Suspect]
     Active Substance: AMITRIPTYLINE
     Dosage: 1 IN THE MORNING AND 2 IN THE EVENING
  8. ACETAMINOPHEN [Suspect]
     Active Substance: ACETAMINOPHEN
     Dosage: 1 IN THE MORNING 1 AT LUNCHTIME AND 1 IN THE EVENING
  9. ACETAMINOPHEN\CODEINE PHOSPHATE [Suspect]
     Active Substance: ACETAMINOPHEN\CODEINE PHOSPHATE
     Dosage: 1 IN THE MORNING 1 AT LUNCHTIME AND 1 IN THE EVENING
  10. NEFOPAM HYDROCHLORIDE [Suspect]
     Active Substance: NEFOPAM HYDROCHLORIDE
     Dosage: 20MG/2 ML: 2 AMPOULES A DAY
  11. METHYLPREDNISOLONE [Suspect]
     Active Substance: METHYLPREDNISOLONE
     Dosage: IN THE MORNING?DAILY DOSE: 1 DOSAGE FORM

REACTIONS (5)
  - Skin ulcer [Recovering/Resolving]
  - Pyoderma gangrenosum [Recovering/Resolving]
  - Pseudomonas infection [Unknown]
  - Morganella infection [Unknown]
  - Enterococcal infection [Unknown]

NARRATIVE: CASE EVENT DATE: 20221101
